FAERS Safety Report 7019074-7 (Version None)
Quarter: 2010Q3

REPORT INFORMATION
  Report Type: 
  Country: None (occurrence: None)
  Receive Date: 20100928
  Receipt Date: 20100923
  Transmission Date: 20110219
  Serious: Yes (Other)
  Sender: FDA-Public Use
  Company Number: A0882973A

PATIENT
  Age: 64 Year
  Sex: Male

DRUGS (5)
  1. AVODART [Suspect]
     Dosage: .5MG PER DAY
     Route: 048
     Dates: start: 20100301
  2. TERAZOSIN HCL [Concomitant]
  3. ASPIRIN [Concomitant]
  4. MULTI-VITAMIN [Concomitant]
  5. LEVAQUIN [Concomitant]

REACTIONS (4)
  - DRUG INEFFECTIVE [None]
  - NIGHT SWEATS [None]
  - PNEUMONIA [None]
  - PROSTATIC SPECIFIC ANTIGEN INCREASED [None]
